FAERS Safety Report 7464903-6 (Version None)
Quarter: 2011Q2

REPORT INFORMATION
  Report Type: 
  Country: None (occurrence: None)
  Receive Date: 20110509
  Receipt Date: 20100818
  Transmission Date: 20111010
  Serious: No
  Sender: FDA-Public Use
  Company Number: US-SANOFI-AVENTIS-2010SA050764

PATIENT
  Age: 56 Year
  Sex: Male

DRUGS (4)
  1. LANTUS [Suspect]
     Indication: TYPE 2 DIABETES MELLITUS
     Dosage: DOSE:160 UNIT(S)
     Route: 058
     Dates: start: 20050101
  2. OPTICLICK [Suspect]
     Indication: TYPE 2 DIABETES MELLITUS
     Dates: start: 20050101
  3. APIDRA [Suspect]
     Indication: TYPE 2 DIABETES MELLITUS
     Dosage: APIDRA FREQUENCY AS NEEDED DOSE:25 UNIT(S)
     Route: 058
     Dates: start: 20050101
  4. OPTICLICK [Suspect]
     Dates: start: 20050101

REACTIONS (3)
  - INCORRECT STORAGE OF DRUG [None]
  - ABDOMINAL DISTENSION [None]
  - BLOOD GLUCOSE INCREASED [None]
